FAERS Safety Report 5660747-6 (Version None)
Quarter: 2008Q1

REPORT INFORMATION
  Report Type: 
  Country: None (occurrence: None)
  Receive Date: 20080311
  Receipt Date: 20080303
  Transmission Date: 20080703
  Serious: Yes (Hospitalization)
  Sender: FDA-Public Use
  Company Number: TR-ELI_LILLY_AND_COMPANY-TR200803000198

PATIENT
  Age: 65 Year
  Sex: Male
  Weight: 92 kg

DRUGS (5)
  1. HUMULIN 70/30 [Suspect]
     Indication: TYPE 2 DIABETES MELLITUS
     Dosage: 18 IU, EACH MORNING
     Route: 058
     Dates: start: 20051111
  2. HUMULIN 70/30 [Suspect]
     Dosage: 18 IU, EACH EVENING
     Route: 058
     Dates: start: 20051111
  3. KARVEZIDE [Concomitant]
     Indication: HYPERTENSION
     Dosage: UNK, DAILY (1/D)
     Route: 048
  4. ATORVASTATIN CALCIUM [Concomitant]
     Indication: BLOOD CHOLESTEROL INCREASED
     Dosage: UNK, DAILY (1/D)
     Route: 048
  5. NEURONTIN [Concomitant]
     Indication: HYPOAESTHESIA
     Dosage: 1.5 D/F, DAILY (1/D)
     Route: 048

REACTIONS (1)
  - VASCULAR GRAFT [None]
